FAERS Safety Report 23947698 (Version 1)
Quarter: 2024Q2

REPORT INFORMATION
  Report Type: Report from Study
  Country: US (occurrence: US)
  Receive Date: 20240606
  Receipt Date: 20240606
  Transmission Date: 20240716
  Serious: No
  Sender: FDA-Public Use
  Company Number: US-AstraZeneca-CH-00635863A

PATIENT
  Weight: 180.05 kg

DRUGS (1)
  1. ULTOMIRIS [Suspect]
     Active Substance: RAVULIZUMAB-CWVZ
     Indication: Product used for unknown indication
     Dosage: UNK
     Route: 065

REACTIONS (10)
  - Eye disorder [Unknown]
  - Muscular weakness [Unknown]
  - Bone pain [Unknown]
  - Feeling abnormal [Unknown]
  - Balance disorder [Unknown]
  - Weight increased [Unknown]
  - Therapeutic response shortened [Unknown]
  - Crying [Unknown]
  - Diarrhoea [Unknown]
  - Upper respiratory tract congestion [Unknown]
